FAERS Safety Report 8835572 (Version 1)
Quarter: 2012Q4

REPORT INFORMATION
  Report Type: 
  Country: US (occurrence: US)
  Receive Date: 20121011
  Receipt Date: 20121011
  Transmission Date: 20130627
  Serious: Yes (Other)
  Sender: FDA-Public Use
  Company Number: US-JNJFOC-20121002208

PATIENT
  Sex: Female
  Weight: 95.26 kg

DRUGS (5)
  1. DURAGESIC [Suspect]
     Indication: BACK DISORDER
     Route: 062
     Dates: start: 2004, end: 201206
  2. CELEBREX [Suspect]
     Indication: BACK PAIN
     Route: 048
     Dates: start: 2003, end: 20120921
  3. RAZADYNE ER [Concomitant]
     Indication: CRANIOCEREBRAL INJURY
     Route: 048
     Dates: start: 2010
  4. PERCOCET [Concomitant]
     Indication: BACK PAIN
     Dosage: 10/325mg/tablet/10/325/as

needed/oral
     Route: 048
     Dates: start: 201206
  5. CYMBALTA [Concomitant]
     Indication: NEUROPATHY PERIPHERAL
     Dosage: 60mg/tablet/60mg/once

daily/oral
     Route: 048
     Dates: start: 2007

REACTIONS (1)
  - Duodenal ulcer [Not Recovered/Not Resolved]
